FAERS Safety Report 8023162-6 (Version None)
Quarter: 2012Q1

REPORT INFORMATION
  Report Type: 
  Country: None (occurrence: None)
  Receive Date: 20120104
  Receipt Date: 20111225
  Transmission Date: 20120608
  Serious: No
  Sender: FDA-Public Use
  Company Number: US-B.I. PHARMACEUTICALS,INC./RIDGEFIELD-2011-BP-28814BP

PATIENT
  Age: 28 Year
  Sex: Female

DRUGS (1)
  1. ZANTAC [Suspect]

REACTIONS (4)
  - DYSPHAGIA [None]
  - GLOSSODYNIA [None]
  - STOMATITIS [None]
  - HYPERSENSITIVITY [None]
